FAERS Safety Report 21094092 (Version 1)
Quarter: 2022Q3

REPORT INFORMATION
  Report Type: Spontaneous
  Country: GB (occurrence: GB)
  Receive Date: 20220718
  Receipt Date: 20220718
  Transmission Date: 20221027
  Serious: Yes (Other)
  Sender: FDA-Public Use
  Company Number: GB-MHRA-MED-202207131331262990-QCLGY

PATIENT
  Age: 58 Year
  Sex: Female
  Weight: 59 kg

DRUGS (1)
  1. MELOXICAM [Suspect]
     Active Substance: MELOXICAM
     Indication: Arthralgia
     Dosage: 15 MILLIGRAM, QD
     Route: 065
     Dates: start: 20220705, end: 20220713

REACTIONS (2)
  - Cardiac flutter [Not Recovered/Not Resolved]
  - Head discomfort [Not Recovered/Not Resolved]
